FAERS Safety Report 20904211 (Version 1)
Quarter: 2022Q2

REPORT INFORMATION
  Report Type: Spontaneous
  Country: DE (occurrence: DE)
  Receive Date: 20220602
  Receipt Date: 20220602
  Transmission Date: 20220721
  Serious: No
  Sender: FDA-Public Use
  Company Number: DE-LUPIN PHARMACEUTICALS INC.-2022-07827

PATIENT
  Age: 2 Year
  Sex: Male

DRUGS (2)
  1. AZACITIDINE [Suspect]
     Active Substance: AZACITIDINE
     Indication: Central nervous system melanoma
     Dosage: 75 MILLIGRAM/SQ. METER, QD (FOR 7 CONSECUTIVE DAYS IN 28-DAY CYCLES)
     Route: 042
  2. TRAMETINIB [Suspect]
     Active Substance: TRAMETINIB
     Indication: Central nervous system melanoma
     Dosage: 0.035 MILLIGRAM/KILOGRAM, QD
     Route: 048

REACTIONS (2)
  - Blood creatine phosphokinase increased [Unknown]
  - Off label use [Unknown]
